FAERS Safety Report 10554681 (Version 1)
Quarter: 2014Q4

REPORT INFORMATION
  Report Type: Spontaneous
  Country: TW (occurrence: TW)
  Receive Date: 20141030
  Receipt Date: 20141030
  Transmission Date: 20150529
  Serious: Yes (Death, Hospitalization, Other)
  Sender: FDA-Public Use
  Company Number: TW-BAXTER-2014BAX063403

PATIENT
  Age: 45 Year
  Sex: Female

DRUGS (12)
  1. DACARBAZINE. [Suspect]
     Active Substance: DACARBAZINE
     Indication: ANGIOSARCOMA
     Dosage: OVER FIVE AND A HALF MONTHS
     Route: 065
  2. DACARBAZINE. [Suspect]
     Active Substance: DACARBAZINE
     Dosage: RE-RECEIVED
     Route: 065
  3. VINORELBINE [Suspect]
     Active Substance: VINORELBINE\VINORELBINE TARTRATE
     Indication: ANGIOSARCOMA
     Route: 048
  4. ADRIAMYCIN [Suspect]
     Active Substance: DOXORUBICIN HYDROCHLORIDE
     Indication: ANGIOSARCOMA
     Dosage: OVER FIVE AND A HALF MONTHS
     Route: 065
  5. PACLITAXEL. [Suspect]
     Active Substance: PACLITAXEL
     Indication: ANGIOSARCOMA
     Dosage: 1 CYCLE
     Route: 065
  6. UROMITEXAN INJECTION 400MG (4ML AMP) [Suspect]
     Active Substance: MESNA
     Indication: ANGIOSARCOMA
     Dosage: OVER FIVE AND A HALF MONTHS
     Route: 065
  7. HOLOXAN 500MG [Suspect]
     Active Substance: IFOSFAMIDE
     Indication: ANGIOSARCOMA
     Dosage: OVER FIVE AND A HALF MONTHS
     Route: 065
  8. UROMITEXAN INJECTION 400MG (4ML AMP) [Suspect]
     Active Substance: MESNA
     Dosage: RE-RECEIVED
     Route: 065
  9. ADRIAMYCIN [Suspect]
     Active Substance: DOXORUBICIN HYDROCHLORIDE
     Dosage: RE-RECEIVED
     Route: 065
  10. DOXORUBICIN [Suspect]
     Active Substance: DOXORUBICIN
     Dosage: RE-RECEIVED
     Route: 065
  11. HOLOXAN 500MG [Suspect]
     Active Substance: IFOSFAMIDE
     Dosage: RE-RECEIVED
     Route: 065
  12. DOXORUBICIN [Suspect]
     Active Substance: DOXORUBICIN
     Indication: ANGIOSARCOMA
     Dosage: OVER FIVE AND A HALF MONTHS
     Route: 065

REACTIONS (3)
  - Pleural effusion [None]
  - Angiosarcoma [None]
  - Neoplasm recurrence [Fatal]
